FAERS Safety Report 20262493 (Version 2)
Quarter: 2022Q1

REPORT INFORMATION
  Report Type: Other
  Country: US (occurrence: None)
  Receive Date: 20211231
  Receipt Date: 20220208
  Transmission Date: 20220423
  Serious: Yes (Hospitalization)
  Sender: FDA-Public Use
  Company Number: US-ROCHE-2985345

PATIENT
  Age: 51 Year
  Sex: Female
  Weight: 86.714 kg

DRUGS (2)
  1. OCREVUS [Suspect]
     Active Substance: OCRELIZUMAB
     Indication: Relapsing-remitting multiple sclerosis
     Dosage: NEXT DOSE ON: 21/APR/2021
     Route: 042
     Dates: start: 20210407
  2. PFIZER-BIONTECH COVID-19 VACCINE [Concomitant]
     Active Substance: TOZINAMERAN
     Dates: start: 20211219

REACTIONS (5)
  - COVID-19 pneumonia [Unknown]
  - Migraine [Unknown]
  - Peripheral swelling [Unknown]
  - Joint swelling [Unknown]
  - Drug intolerance [Unknown]

NARRATIVE: CASE EVENT DATE: 20210901
